FAERS Safety Report 21792297 (Version 1)
Quarter: 2022Q4

REPORT INFORMATION
  Report Type: Spontaneous
  Country: US (occurrence: US)
  Receive Date: 20221229
  Receipt Date: 20221229
  Transmission Date: 20230112
  Serious: No
  Sender: FDA-Public Use
  Company Number: US-SANOFI-01419427

PATIENT
  Age: 12 Year
  Sex: Female
  Weight: 51 kg

DRUGS (2)
  1. DUPIXENT [Suspect]
     Active Substance: DUPILUMAB
     Indication: Dermatitis atopic
     Dosage: UNK UNK, 1X
     Route: 058
  2. DUPIXENT [Suspect]
     Active Substance: DUPILUMAB
     Dosage: 300 MG, QOW
     Route: 058
     Dates: end: 202210

REACTIONS (4)
  - Myalgia [Recovered/Resolved]
  - Arthralgia [Recovered/Resolved]
  - Eczema [Not Recovered/Not Resolved]
  - Incorrect dose administered [Unknown]
